FAERS Safety Report 8735150 (Version 3)
Quarter: 2012Q4

REPORT INFORMATION
  Report Type: 
  Country: US (occurrence: US)
  Receive Date: 20120821
  Receipt Date: 20121018
  Transmission Date: 20130627
  Serious: Yes (Other)
  Sender: FDA-Public Use
  Company Number: US-PFIZER INC-2012199822

PATIENT
  Age: 54 Year
  Sex: Male
  Weight: 77.1 kg

DRUGS (1)
  1. ZYVOX [Suspect]
     Indication: STAPHYLOCOCCAL INFECTION
     Dosage: 600 mg, 2x/day

REACTIONS (2)
  - Drug ineffective [Not Recovered/Not Resolved]
  - Rash [Unknown]
